FAERS Safety Report 8050930-7 (Version None)
Quarter: 2012Q1

REPORT INFORMATION
  Report Type: 
  Country: None (occurrence: None)
  Receive Date: 20120117
  Receipt Date: 20120110
  Transmission Date: 20120608
  Serious: Yes (Other)
  Sender: FDA-Public Use
  Company Number: PHEH2011US011185

PATIENT
  Sex: Female

DRUGS (4)
  1. REVLIMID [Suspect]
     Dosage: 10 MG, UNK
  2. EXJADE [Suspect]
     Dosage: 500 MG, BID
     Route: 048
     Dates: start: 20110711
  3. REVLIMID [Suspect]
     Dosage: 25 MG, THREE TIMES WEEKLY
  4. REVLIMID [Suspect]
     Dosage: 10 MG DAILY

REACTIONS (9)
  - CONSTIPATION [None]
  - MALAISE [None]
  - FATIGUE [None]
  - ABDOMINAL PAIN [None]
  - DIARRHOEA [None]
  - FREQUENT BOWEL MOVEMENTS [None]
  - ABDOMINAL PAIN UPPER [None]
  - HERPES ZOSTER [None]
  - RASH [None]
